FAERS Safety Report 4518446-X (Version None)
Quarter: 2004Q4

REPORT INFORMATION
  Report Type: 
  Country: None (occurrence: None)
  Receive Date: 20041202
  Receipt Date: 20041122
  Transmission Date: 20050328
  Serious: Yes (Hospitalization)
  Sender: FDA-Public Use
  Company Number: 2004-BP-06951BP

PATIENT
  Sex: Male

DRUGS (5)
  1. SPIRIVA [Suspect]
     Indication: CHRONIC OBSTRUCTIVE AIRWAYS DISEASE
     Dosage: 18 MCG (18 MCG), IH
     Route: 055
     Dates: start: 20040731, end: 20040806
  2. COMBIVENT [Suspect]
     Indication: CHRONIC OBSTRUCTIVE AIRWAYS DISEASE
     Dosage: SEE IMAGE
     Route: 055
  3. DUONEB [Suspect]
     Indication: CHRONIC OBSTRUCTIVE AIRWAYS DISEASE
     Dosage: SEE IMAGE
     Route: 055
  4. VASOTEC [Concomitant]
  5. DIGOXIN [Concomitant]

REACTIONS (4)
  - OEDEMA PERIPHERAL [None]
  - OROPHARYNGEAL SWELLING [None]
  - SPEECH DISORDER [None]
  - SWOLLEN TONGUE [None]
